FAERS Safety Report 20506373 (Version 1)
Quarter: 2022Q1

REPORT INFORMATION
  Report Type: Spontaneous
  Country: US (occurrence: US)
  Receive Date: 20220223
  Receipt Date: 20220223
  Transmission Date: 20220423
  Serious: Yes (Death, Life-Threatening, Hospitalization, Other)
  Sender: FDA-Public Use
  Company Number: US-PFIZER INC-202200256855

PATIENT
  Age: 73 Year
  Sex: Female

DRUGS (4)
  1. BUPIVACAINE HYDROCHLORIDE [Suspect]
     Active Substance: BUPIVACAINE HYDROCHLORIDE
     Dosage: 2 ML
     Route: 051
     Dates: start: 2020
  2. BUPIVACAINE HYDROCHLORIDE [Suspect]
     Active Substance: BUPIVACAINE HYDROCHLORIDE
     Dosage: 8 ML
     Route: 051
     Dates: start: 2020
  3. INSULIN GLARGINE [Concomitant]
     Active Substance: INSULIN GLARGINE
     Indication: Type 2 diabetes mellitus
     Dosage: UNK
  4. SEVELAMER [Concomitant]
     Active Substance: SEVELAMER
     Dosage: UNK

REACTIONS (4)
  - Cardiac arrest [Fatal]
  - Hypotension [Unknown]
  - Bradycardia [Unknown]
  - Pulse absent [Unknown]

NARRATIVE: CASE EVENT DATE: 20200101
